FAERS Safety Report 23820779 (Version 1)
Quarter: 2024Q2

REPORT INFORMATION
  Report Type: Spontaneous
  Country: US (occurrence: None)
  Receive Date: 20240504
  Receipt Date: 20240504
  Transmission Date: 20240716
  Serious: No
  Sender: FDA-Public Use
  Company Number: None

PATIENT
  Age: 52 Year
  Sex: Female
  Weight: 76.5 kg

DRUGS (7)
  1. TERCONAZOLE [Suspect]
     Active Substance: TERCONAZOLE
     Indication: Vulvovaginal mycotic infection
     Dosage: OTHER QUANTITY : 3 SUPPOSITORY(IES);?FREQUENCY : AT BEDTIME;?
     Route: 067
     Dates: start: 20240503, end: 20240504
  2. ESTRADIOL TRANSDERMAL SYSTEM [Concomitant]
     Active Substance: ESTRADIOL
  3. PROGESTERONE [Concomitant]
     Active Substance: PROGESTERONE
  4. TESTOSTERONE [Concomitant]
     Active Substance: TESTOSTERONE
  5. VITAMIN D [Concomitant]
     Active Substance: VITAMIN D NOS
  6. PROBIOTICS NOS [Concomitant]
     Active Substance: PROBIOTICS NOS
  7. ZYRTEC [Concomitant]
     Active Substance: CETIRIZINE HYDROCHLORIDE

REACTIONS (5)
  - Chills [None]
  - Chills [None]
  - Myalgia [None]
  - Lethargy [None]
  - Headache [None]

NARRATIVE: CASE EVENT DATE: 20240503
